FAERS Safety Report 24533827 (Version 1)
Quarter: 2024Q4

REPORT INFORMATION
  Report Type: Spontaneous
  Country: PR (occurrence: None)
  Receive Date: 20241021
  Receipt Date: 20241021
  Transmission Date: 20250115
  Serious: Yes (Death)
  Sender: Public
  Company Number: None

PATIENT
  Age: 39 Year
  Sex: Male
  Weight: 95.85 kg

DRUGS (2)
  1. LAZCLUZE [Suspect]
     Active Substance: LAZERTINIB
     Indication: Non-small cell lung cancer
     Dosage: FREQUENCY : DAILY;?
     Route: 048
     Dates: start: 20240906, end: 20241002
  2. LAZCLUZE [Suspect]
     Active Substance: LAZERTINIB
     Indication: EGFR gene mutation

REACTIONS (4)
  - Dyspnoea [None]
  - Oxygen saturation decreased [None]
  - Fatigue [None]
  - Fluid retention [None]

NARRATIVE: CASE EVENT DATE: 20241018
